FAERS Safety Report 10260250 (Version 2)
Quarter: 2014Q3

REPORT INFORMATION
  Report Type: Spontaneous
  Country: US (occurrence: US)
  Receive Date: 20140625
  Receipt Date: 20140924
  Transmission Date: 20150326
  Serious: No
  Sender: FDA-Public Use
  Company Number: US-SA-2014SA044491

PATIENT
  Age: 68 Year
  Sex: Male

DRUGS (13)
  1. BACLOFEN. [Concomitant]
     Active Substance: BACLOFEN
  2. MECLIZINE [Concomitant]
     Active Substance: MECLIZINE\MECLIZINE HYDROCHLORIDE
  3. TRAMADOL [Concomitant]
     Active Substance: TRAMADOL
  4. DETROL [Concomitant]
     Active Substance: TOLTERODINE TARTRATE
  5. LEVOTHYROXINE [Concomitant]
     Active Substance: LEVOTHYROXINE
  6. CENTRUM SILVER [Concomitant]
     Active Substance: VITAMINS
  7. KRILL OIL [Concomitant]
     Active Substance: DIETARY SUPPLEMENT
  8. AUBAGIO [Suspect]
     Active Substance: TERIFLUNOMIDE
     Indication: MULTIPLE SCLEROSIS
     Route: 048
     Dates: start: 20140313
  9. SIMVASTATIN. [Concomitant]
     Active Substance: SIMVASTATIN
  10. NITROFURANTOIN. [Concomitant]
     Active Substance: NITROFURANTOIN
  11. VITAMIN D [Concomitant]
     Active Substance: CHOLECALCIFEROL
  12. MIOCARPINE ^COO^ [Concomitant]
  13. PROVIGIL [Concomitant]
     Active Substance: MODAFINIL

REACTIONS (8)
  - Muscular weakness [Not Recovered/Not Resolved]
  - Diarrhoea [Unknown]
  - Fatigue [Not Recovered/Not Resolved]
  - Myalgia [Unknown]
  - Rhinorrhoea [Unknown]
  - Drug dose omission [Unknown]
  - Pruritus [Unknown]
  - Headache [Unknown]
